FAERS Safety Report 7771098-8 (Version None)
Quarter: 2011Q3

REPORT INFORMATION
  Report Type: 
  Country: None (occurrence: None)
  Receive Date: 20110922
  Receipt Date: 20110916
  Transmission Date: 20111222
  Serious: Yes (Hospitalization, Other)
  Sender: FDA-Public Use
  Company Number: CA-PFIZER INC-2011205760

PATIENT
  Sex: Male

DRUGS (32)
  1. XALATAN [Suspect]
     Indication: GLAUCOMA
     Dosage: 1 GTT, 1X/DAY IN RIGHT EYE
  2. HUMULIN 70/30 [Concomitant]
     Indication: BLOOD GLUCOSE ABNORMAL
     Dosage: 20 UNITS, 1X/DAY AM
  3. INSULIN TORONTO [Concomitant]
     Indication: BLOOD GLUCOSE ABNORMAL
     Dosage: 40 UNITS, 1X/DAY AM
  4. COSOPT [Concomitant]
     Indication: GLAUCOMA
     Dosage: 1 GTT, 2X/DAY
  5. FUROSEMIDE [Concomitant]
     Indication: DIURETIC THERAPY
     Dosage: 40 MG, 2X/DAY
     Route: 048
  6. LYRICA [Concomitant]
     Indication: NEURALGIA
     Dosage: 75 MG, 1X/DAY IN THE MORNING
     Route: 048
  7. METFORMIN [Concomitant]
     Indication: DIABETES MELLITUS
     Dosage: 500 MG, 2X/DAY
     Route: 048
  8. VITAMIN D [Concomitant]
     Indication: BONE DISORDER
     Dosage: 10000 IU, WEEKLY
     Route: 048
  9. WARFARIN [Concomitant]
     Dosage: 4.5 MG, ALTERNATE DAY
  10. ATROPINE [Concomitant]
     Indication: PAIN
     Dosage: 1 GTT, 2X/DAY
  11. WARFARIN [Concomitant]
     Indication: THROMBOSIS
     Dosage: 4 MG, ALTERNATE DAY
  12. ADVAIR DISKUS 100/50 [Concomitant]
     Indication: ASTHMA
     Dosage: 1 PUFF AS NEEDED
     Route: 055
  13. PANTOPRAZOLE [Concomitant]
     Indication: GASTROOESOPHAGEAL REFLUX DISEASE
     Dosage: 40 MG, 1X/DAY
     Route: 048
  14. FUROSEMIDE [Concomitant]
     Indication: CARDIAC FAILURE CONGESTIVE
  15. ALPHAGAN [Concomitant]
     Indication: GLAUCOMA
     Dosage: 1 GTT, 3X/DAY
  16. SPIRIVA [Concomitant]
     Indication: ASTHMA
     Dosage: 1 PUFF AS NEEDED
     Route: 055
  17. CITALOPRAM [Concomitant]
     Indication: ANTIDEPRESSANT THERAPY
     Dosage: 30 MG, 1X/DAY
     Route: 048
  18. LYRICA [Concomitant]
     Dosage: 150 MG, 1X/DAY AT NIGHT
     Route: 048
  19. ATORVASTATIN [Concomitant]
     Indication: BLOOD CHOLESTEROL
     Dosage: 20 MG, 1X/DAY
     Route: 048
  20. HUMULIN 70/30 [Concomitant]
     Dosage: 40 UNITS, 1X/DAY PM
  21. INSULIN TORONTO [Concomitant]
     Dosage: 30 UNITS, 1X/DAY LUNCH
  22. INSULIN TORONTO [Concomitant]
     Dosage: 30 UNITS, 1X/DAY BEDTIME
  23. PREDNISOLONE [Concomitant]
     Indication: INFLAMMATION
     Dosage: 1 GTT, 1X/DAY
  24. LEFLUNOMIDE [Concomitant]
     Indication: RHEUMATOID ARTHRITIS
     Dosage: 40 MG, 2X/DAY
     Route: 048
  25. PREDNISONE [Concomitant]
     Indication: INFLAMMATION
     Dosage: 20 MG, 1X/DAY
     Route: 048
  26. SYNTHROID [Concomitant]
     Indication: THYROID DISORDER
     Dosage: 0.05 MG, 1X/DAY
     Route: 048
  27. OLMESARTAN MEDOXOMIL [Concomitant]
     Indication: BLOOD PRESSURE
     Dosage: UNK
     Dates: end: 20110801
  28. CALCIUM [Concomitant]
     Indication: BONE DISORDER
     Dosage: 500 MG, 2X/DAY
     Route: 048
  29. TESTOSTERONE [Concomitant]
     Indication: BLOOD TESTOSTERONE ABNORMAL
     Dosage: 40 MG, 2X/DAY
     Route: 048
  30. FUROSEMIDE [Concomitant]
     Indication: OEDEMA
  31. FERROUS SULFATE [Concomitant]
     Indication: IRON DEFICIENCY ANAEMIA
     Dosage: 300 MG, 2X/DAY
  32. NORVASC [Concomitant]
     Indication: BLOOD PRESSURE
     Dosage: 5 MG, 1X/DAY
     Route: 048

REACTIONS (7)
  - DYSPNOEA [None]
  - INSOMNIA [None]
  - DYSSTASIA [None]
  - SYSTEMIC LUPUS ERYTHEMATOSUS [None]
  - OEDEMA PERIPHERAL [None]
  - PAIN IN EXTREMITY [None]
  - BLINDNESS UNILATERAL [None]
